FAERS Safety Report 19929497 (Version 2)
Quarter: 2021Q4

REPORT INFORMATION
  Report Type: Spontaneous
  Country: FR (occurrence: FR)
  Receive Date: 20211007
  Receipt Date: 20211025
  Transmission Date: 20220303
  Serious: Yes (Hospitalization)
  Sender: FDA-Public Use
  Company Number: None

PATIENT
  Age: 40 Year
  Sex: Female

DRUGS (4)
  1. CLINDAMYCIN [Suspect]
     Active Substance: CLINDAMYCIN
     Indication: Infection
     Dosage: 600 MG, 3X/DAY
     Route: 048
     Dates: start: 20210321, end: 20210415
  2. PIPERACILLIN SODIUM\TAZOBACTAM SODIUM [Suspect]
     Active Substance: PIPERACILLIN SODIUM\TAZOBACTAM SODIUM
     Indication: Infection
     Dosage: UNK
     Route: 048
     Dates: start: 202104
  3. CEFAZOLIN [Suspect]
     Active Substance: CEFAZOLIN
     Indication: Infection
     Dosage: UNK
     Route: 048
     Dates: start: 202103, end: 20210329
  4. CEPHALEXIN [Suspect]
     Active Substance: CEPHALEXIN
     Indication: Infection
     Dosage: 2 G, 3X/DAY
     Route: 048
     Dates: start: 20210329, end: 20210415

REACTIONS (3)
  - Febrile neutropenia [Not Recovered/Not Resolved]
  - Off label use [Unknown]
  - Product use issue [Unknown]

NARRATIVE: CASE EVENT DATE: 20210324
